FAERS Safety Report 6666025-0 (Version None)
Quarter: 2010Q2

REPORT INFORMATION
  Report Type: 
  Country: None (occurrence: None)
  Receive Date: 20100402
  Receipt Date: 20100330
  Transmission Date: 20101027
  Serious: Yes (Hospitalization)
  Sender: FDA-Public Use
  Company Number: A0850008A

PATIENT
  Age: 54 Year
  Sex: Female

DRUGS (2)
  1. AVANDIA [Suspect]
     Indication: DIABETES MELLITUS
     Route: 048
     Dates: start: 20050101, end: 20070101
  2. CONCURRENT MEDICATIONS [Concomitant]

REACTIONS (12)
  - ANAEMIA [None]
  - BLINDNESS [None]
  - CARDIAC FAILURE CONGESTIVE [None]
  - CEREBROVASCULAR ACCIDENT [None]
  - CHRONIC OBSTRUCTIVE PULMONARY DISEASE [None]
  - HEART RATE IRREGULAR [None]
  - HYPOTENSION [None]
  - LIVER DISORDER [None]
  - MACULAR OEDEMA [None]
  - OSTEOPOROSIS [None]
  - RENAL DISORDER [None]
  - RENAL FAILURE [None]
